FAERS Safety Report 7610061-4 (Version None)
Quarter: 2011Q3

REPORT INFORMATION
  Report Type: 
  Country: None (occurrence: None)
  Receive Date: 20110715
  Receipt Date: 20110708
  Transmission Date: 20111222
  Serious: Yes (Other)
  Sender: FDA-Public Use
  Company Number: BE-AMGEN-BELSP2011027317

PATIENT
  Age: 72 Year
  Sex: Male
  Weight: 48 kg

DRUGS (4)
  1. ACTONEL [Concomitant]
     Dosage: UNK
     Route: 048
  2. ENBREL [Suspect]
     Indication: RHEUMATOID ARTHRITIS
     Dosage: 25 MG, WEEKLY
     Route: 058
     Dates: start: 20000101
  3. DIPROPHOS [Concomitant]
     Dosage: 1 ML, EVERY 3 WEEKS
     Route: 030
  4. LEVOTHYROXINE SODIUM [Concomitant]
     Dosage: 25 UG, UNK

REACTIONS (1)
  - SQUAMOUS CELL CARCINOMA [None]
